FAERS Safety Report 7516301-4 (Version None)
Quarter: 2011Q2

REPORT INFORMATION
  Report Type: 
  Country: None (occurrence: None)
  Receive Date: 20110601
  Receipt Date: 20110526
  Transmission Date: 20111010
  Serious: Yes (Death)
  Sender: FDA-Public Use
  Company Number: PHHY2011US42280

PATIENT

DRUGS (1)
  1. FEMARA [Suspect]
     Dosage: 2.5 MG
     Route: 048

REACTIONS (1)
  - DEATH [None]
